FAERS Safety Report 9566078 (Version 1)
Quarter: 2013Q3

REPORT INFORMATION
  Report Type: Spontaneous
  Country: FR (occurrence: FR)
  Receive Date: 20130930
  Receipt Date: 20130930
  Transmission Date: 20140515
  Serious: Yes (Other)
  Sender: FDA-Public Use
  Company Number: FR-PFIZER INC-2013274617

PATIENT
  Sex: Male

DRUGS (1)
  1. CAVERJECT [Suspect]

REACTIONS (2)
  - Penile haemorrhage [Unknown]
  - Penile pain [Unknown]
